FAERS Safety Report 8166184 (Version 2)
Quarter: 2012Q4

REPORT INFORMATION
  Report Type: 
  Country: US (occurrence: US)
  Receive Date: 20111003
  Receipt Date: 20120828
  Transmission Date: 20130627
  Serious: Yes (Hospitalization)
  Sender: FDA-Public Use
  Company Number: US-BAYER-2011-092353

PATIENT
  Age: 18 Year
  Sex: Female
  Weight: 85.26 kg

DRUGS (1)
  1. OCELLA [Suspect]
     Indication: CONTRACEPTION
     Dosage: UNK UNK, QD
     Route: 048
     Dates: start: 20090624, end: 20091013

REACTIONS (12)
  - Cholecystectomy [None]
  - Cholecystitis acute [None]
  - Bile duct stone [None]
  - Pain [None]
  - Depression [None]
  - Anxiety [None]
  - Scar [None]
  - Abdominal distension [None]
  - Flatulence [None]
  - Diarrhoea [None]
  - Constipation [None]
  - Dyspepsia [None]
